FAERS Safety Report 8520627-5 (Version None)
Quarter: 2012Q3

REPORT INFORMATION
  Report Type: 
  Country: None (occurrence: None)
  Receive Date: 20120719
  Receipt Date: 20120705
  Transmission Date: 20120928
  Serious: Yes (Hospitalization)
  Sender: FDA-Public Use
  Company Number: US-SANOFI-AVENTIS-2012SA048884

PATIENT
  Age: 63 Year
  Sex: Female
  Weight: 95 kg

DRUGS (15)
  1. METHADONE HCL [Suspect]
  2. ATORVASTATIN [Suspect]
  3. ALLEGRA [Suspect]
  4. TAMSULOSIN HCL [Suspect]
  5. VITAMIN D [Suspect]
     Indication: VITAMIN D DEFICIENCY
  6. BISACODYL [Suspect]
     Indication: IRRITABLE BOWEL SYNDROME
  7. ALL OTHER THERAPEUTIC PRODUCTS [Suspect]
  8. LYRICA [Suspect]
     Indication: FIBROMYALGIA
     Dates: start: 20110101
  9. ASPIRIN [Suspect]
  10. LYRICA [Suspect]
  11. METHADONE HCL [Suspect]
     Indication: BACK DISORDER
  12. ABILIFY [Suspect]
     Indication: DEPRESSION
  13. OSTEO BI-FLEX [Suspect]
     Indication: BACK PAIN
  14. LISINOPRIL [Suspect]
     Indication: BLOOD PRESSURE
  15. OMEPRAZOLE [Suspect]

REACTIONS (1)
  - DRUG INTERACTION [None]
